FAERS Safety Report 8836209 (Version 1)
Quarter: 2012Q4

REPORT INFORMATION
  Report Type: Report from Study
  Country: DE (occurrence: DE)
  Receive Date: 20121011
  Receipt Date: 20121011
  Transmission Date: 20130627
  Serious: Yes (Hospitalization)
  Sender: FDA-Public Use
  Company Number: DE-BAXTER-2012BAX018722

PATIENT
  Sex: Female

DRUGS (11)
  1. ENDOXAN 1G [Suspect]
     Indication: B-CELL LYMPHOMA
     Route: 042
     Dates: start: 20120425
  2. RITUXIMAB [Suspect]
     Indication: B-CELL LYMPHOMA
     Route: 042
     Dates: start: 20120424
  3. RITUXIMAB [Suspect]
     Route: 042
     Dates: start: 20120619
  4. DOXORUBICIN HYDROCHLORIDE [Suspect]
     Indication: B-CELL LYMPHOMA
     Route: 042
     Dates: start: 20120425
  5. VINCRISTINE [Suspect]
     Indication: B-CELL LYMPHOMA
     Route: 042
     Dates: start: 20120425
  6. PREDNISONE [Suspect]
     Indication: B-CELL LYMPHOMA
     Route: 048
     Dates: start: 20120425
  7. PEGFILGRASTIM [Suspect]
     Indication: B-CELL LYMPHOMA
     Route: 058
     Dates: start: 20120428
  8. MIRTAZAPINE [Concomitant]
     Indication: INSOMNIA
     Route: 048
  9. RAMIPRIL [Concomitant]
     Indication: HYPERTENSION ARTERIAL
     Route: 048
  10. BISOPROLOL [Concomitant]
     Indication: HYPERTENSION ARTERIAL
     Route: 048
  11. SIMVASTATIN [Concomitant]
     Indication: HYPERLIPIDAEMIA
     Route: 048

REACTIONS (2)
  - Leukopenia [Recovered/Resolved]
  - Back pain [Recovered/Resolved]
